FAERS Safety Report 6412284-9 (Version None)
Quarter: 2009Q4

REPORT INFORMATION
  Report Type: 
  Country: None (occurrence: None)
  Receive Date: 20091023
  Receipt Date: 20091014
  Transmission Date: 20100525
  Serious: Yes (Hospitalization, Other)
  Sender: FDA-Public Use
  Company Number: DE-JNJFOC-20090903863

PATIENT
  Sex: Female
  Weight: 51.9 kg

DRUGS (6)
  1. REMICADE [Suspect]
     Indication: COLITIS ULCERATIVE
     Dosage: RECEIVED2 INFUSIONS
     Route: 042
     Dates: start: 20080229, end: 20080318
  2. DOLOPOSTERINE [Concomitant]
     Indication: HAEMORRHOIDS
  3. MERCAPTOPURINE [Concomitant]
     Indication: COLITIS ULCERATIVE
     Route: 048
  4. CIPRO [Concomitant]
     Dosage: FREQUENCY ^2^
     Route: 048
  5. SALOFALK [Concomitant]
     Indication: COLITIS ULCERATIVE
     Dosage: FREQUENCY ^3^
     Route: 048
  6. PREDNISOLONE [Concomitant]
     Indication: COLITIS ULCERATIVE
     Route: 048

REACTIONS (2)
  - COLITIS ULCERATIVE [None]
  - CYTOMEGALOVIRUS INFECTION [None]
